FAERS Safety Report 10307174 (Version 1)
Quarter: 2014Q3

REPORT INFORMATION
  Report Type: Spontaneous
  Country: GB (occurrence: GB)
  Receive Date: 20140716
  Receipt Date: 20140716
  Transmission Date: 20150326
  Serious: No
  Sender: FDA-Public Use
  Company Number: GB-ROCHE-1434374

PATIENT
  Age: 81 Year
  Sex: Male

DRUGS (5)
  1. PREDNISOLONE. [Concomitant]
     Active Substance: PREDNISOLONE
     Dosage: ON TAPERING DOSES
     Route: 048
  2. RANIBIZUMAB [Suspect]
     Active Substance: RANIBIZUMAB
     Dosage: TWO MONTHLY INTRAVITREAL INJECTIONS OF RANIBIZUMAB IN THE RIGHT EYE AND THREE MONTHLY INTRAVITREAL I
     Route: 050
  3. RANIBIZUMAB [Suspect]
     Active Substance: RANIBIZUMAB
     Indication: CHOROIDAL NEOVASCULARISATION
     Dosage: 0.5 MG IN 0.05 ML IN THE RIGHT EYE
     Route: 050
  4. PREDNISOLONE. [Concomitant]
     Active Substance: PREDNISOLONE
     Route: 065
  5. TIMOLOL [Concomitant]
     Active Substance: TIMOLOL
     Route: 065

REACTIONS (2)
  - Visual acuity reduced [Unknown]
  - Subretinal fibrosis [Unknown]
